FAERS Safety Report 4509602-5 (Version None)
Quarter: 2004Q4

REPORT INFORMATION
  Report Type: 
  Country: None (occurrence: None)
  Receive Date: 20041119
  Receipt Date: 20041103
  Transmission Date: 20050328
  Serious: Yes (Other)
  Sender: FDA-Public Use
  Company Number: US_0411107893

PATIENT
  Age: 64 Year
  Sex: Male

DRUGS (1)
  1. HUMULIN 70/30 [Suspect]
     Dates: start: 19890101

REACTIONS (4)
  - CARDIAC OPERATION [None]
  - CARDIOMEGALY [None]
  - EYE DISORDER [None]
  - SURGICAL PROCEDURE REPEATED [None]
